FAERS Safety Report 17162961 (Version 1)
Quarter: 2019Q4

REPORT INFORMATION
  Report Type: Spontaneous
  Country: US (occurrence: US)
  Receive Date: 20191216
  Receipt Date: 20191216
  Transmission Date: 20200122
  Serious: Yes (Hospitalization)
  Sender: FDA-Public Use
  Company Number: None

PATIENT
  Age: 85 Year
  Sex: Male
  Weight: 89.1 kg

DRUGS (6)
  1. ASPIRIN. [Suspect]
     Active Substance: ASPIRIN
     Route: 048
     Dates: start: 20130925
  2. APIXABAN [Suspect]
     Active Substance: APIXABAN
     Indication: ATRIAL FIBRILLATION
     Route: 048
     Dates: start: 20141125
  3. PRAVASTATIN 20MG DAILY [Concomitant]
  4. FUROSEMIDE 20MG DAILY [Concomitant]
  5. POTASSIUM 10MEQ BID [Concomitant]
  6. METOPROLOL SUCCINATE 25MG DAILY [Concomitant]

REACTIONS (3)
  - Cerebral haematoma [None]
  - Fall [None]
  - Loss of consciousness [None]

NARRATIVE: CASE EVENT DATE: 20150929
